FAERS Safety Report 9152288 (Version 4)
Quarter: 2013Q4

REPORT INFORMATION
  Report Type: Spontaneous
  Country: DK (occurrence: DK)
  Receive Date: 20130308
  Receipt Date: 20131030
  Transmission Date: 20140711
  Serious: Yes (Other)
  Sender: FDA-Public Use
  Company Number: DK-PFIZER INC-2013078496

PATIENT
  Age: 42 Year
  Sex: Male

DRUGS (11)
  1. LYRICA [Suspect]
     Indication: ABDOMINAL PAIN
     Route: 048
  2. PANODIL [Suspect]
     Indication: ABDOMINAL PAIN
     Dosage: 665 MG, 8-10 TIMES DAILY
     Route: 048
  3. SAROTEN [Suspect]
     Indication: ABDOMINAL PAIN
     Route: 048
  4. DOLOL [Suspect]
     Indication: ABDOMINAL PAIN
     Dosage: 50 MG, SOMETIMES 6 TABLETS A DAY
     Route: 048
  5. DICLODAN [Suspect]
     Indication: ABDOMINAL PAIN
  6. BUSCOPAN [Suspect]
     Indication: ABDOMINAL PAIN
     Dosage: UNK MG, UNK
     Route: 048
  7. OMEPRAZOLE [Concomitant]
     Route: 048
  8. METHADONE [Concomitant]
  9. FURIX [Concomitant]
  10. ERYCIN [Concomitant]
  11. CHLORZOXAZONE [Concomitant]

REACTIONS (2)
  - Off label use [Unknown]
  - Gastric ulcer [Recovering/Resolving]
